FAERS Safety Report 17839764 (Version 13)
Quarter: 2023Q1

REPORT INFORMATION
  Report Type: Report from Study
  Country: US (occurrence: US)
  Receive Date: 20200529
  Receipt Date: 20230202
  Transmission Date: 20230418
  Serious: No
  Sender: FDA-Public Use
  Company Number: US-NOVARTISPH-NVSC2020US146331

PATIENT
  Sex: Female

DRUGS (2)
  1. ENTRESTO [Suspect]
     Active Substance: SACUBITRIL\VALSARTAN
     Indication: Cardiac failure chronic
     Dosage: UNK
     Route: 065
  2. ENTRESTO [Suspect]
     Active Substance: SACUBITRIL\VALSARTAN
     Dosage: 1 DF (49/51 MG), UNKNOWN
     Route: 065

REACTIONS (16)
  - Malaise [Not Recovered/Not Resolved]
  - Confusional state [Unknown]
  - Poor quality sleep [Unknown]
  - Muscle spasms [Unknown]
  - Weight decreased [Recovering/Resolving]
  - Blood pressure increased [Unknown]
  - Energy increased [Unknown]
  - Arthralgia [Recovering/Resolving]
  - Influenza [Unknown]
  - Oropharyngeal pain [Unknown]
  - Back pain [Unknown]
  - Vomiting [Unknown]
  - Fatigue [Unknown]
  - Nausea [Unknown]
  - Diarrhoea [Unknown]
  - Product dose omission issue [Unknown]
